FAERS Safety Report 8439796-0 (Version None)
Quarter: 2012Q2

REPORT INFORMATION
  Report Type: 
  Country: None (occurrence: None)
  Receive Date: 20120611
  Receipt Date: 20120611
  Transmission Date: 20120825
  Serious: Yes (Other)
  Sender: FDA-Public Use
  Company Number: None

PATIENT
  Age: 39 Year
  Sex: Male

DRUGS (1)
  1. ADDERALL 10 [Suspect]
     Dosage: 20 MG, ONCE A DAY, PO
     Route: 048
     Dates: start: 20120404

REACTIONS (2)
  - TENSION [None]
  - NERVOUS SYSTEM DISORDER [None]
